FAERS Safety Report 7486463-6 (Version None)
Quarter: 2011Q2

REPORT INFORMATION
  Report Type: 
  Country: None (occurrence: None)
  Receive Date: 20110517
  Receipt Date: 20110506
  Transmission Date: 20111010
  Serious: Yes (Hospitalization)
  Sender: FDA-Public Use
  Company Number: US-JNJFOC-20110400303

PATIENT
  Sex: Female
  Weight: 74.84 kg

DRUGS (2)
  1. METHOTREXATE [Concomitant]
     Indication: RHEUMATOID ARTHRITIS
     Route: 048
  2. SIMPONI [Suspect]
     Indication: RHEUMATOID ARTHRITIS
     Route: 058

REACTIONS (7)
  - EXOSTOSIS [None]
  - PERICARDITIS RHEUMATIC [None]
  - PLEURAL EFFUSION [None]
  - SINUSITIS [None]
  - PERICARDIAL EFFUSION [None]
  - COLLAPSE OF LUNG [None]
  - FATIGUE [None]
